FAERS Safety Report 6538955-1 (Version None)
Quarter: 2010Q1

REPORT INFORMATION
  Report Type: 
  Country: None (occurrence: None)
  Receive Date: 20100115
  Receipt Date: 20100108
  Transmission Date: 20100710
  Serious: Yes (Hospitalization)
  Sender: FDA-Public Use
  Company Number: JP-ROCHE-679210

PATIENT
  Sex: Female

DRUGS (18)
  1. TOCILIZUMAB [Suspect]
     Indication: RHEUMATOID ARTHRITIS
     Route: 042
     Dates: start: 20091223
  2. METHOTREXATE [Suspect]
     Indication: DRUG USE FOR UNKNOWN INDICATION
     Route: 048
     Dates: start: 20090310
  3. FOLIC ACID [Concomitant]
     Dosage: FORM: ORAL FORMULATION
     Route: 048
     Dates: start: 20020408
  4. METHYLPREDNISOLONE 4MG TAB [Concomitant]
     Route: 048
     Dates: start: 20090929
  5. MELOXICAM [Concomitant]
     Route: 048
     Dates: start: 20060126
  6. FERROUS SULFATE TAB [Concomitant]
     Route: 048
     Dates: start: 20021021
  7. MESOGLYCAN [Concomitant]
     Route: 048
     Dates: start: 20060426
  8. ADCAL [Concomitant]
     Route: 048
     Dates: start: 20060426
  9. RISEDRONATE SODIUM [Concomitant]
     Route: 048
  10. REBAMIPIDE [Concomitant]
     Route: 048
     Dates: start: 20040331
  11. ISONIAZID [Concomitant]
     Route: 048
     Dates: start: 20091113
  12. PYRIDOXINE [Concomitant]
     Route: 048
     Dates: start: 20091113
  13. AMLODIPINE [Concomitant]
     Route: 048
     Dates: start: 20080514
  14. ASPIRIN [Concomitant]
     Dosage: DRUG: ASPIRIN ENTERIC COATED
     Route: 048
     Dates: start: 20080514
  15. THIOCTIC ACID [Concomitant]
     Route: 048
     Dates: start: 20080514
  16. METFORMIN HYDROCHLORIDE [Concomitant]
     Route: 048
     Dates: start: 20080514
  17. MAGNESIUM HYDROXIDE TAB [Concomitant]
     Route: 048
     Dates: start: 20080514
  18. CHLORPHENIRAMINE MALEATE [Concomitant]
     Dosage: DRUG:CHLORPHENIRAMINE MALEATE
     Route: 030
     Dates: start: 20091223

REACTIONS (2)
  - HEADACHE [None]
  - QUADRIPARESIS [None]
